FAERS Safety Report 4402787-0 (Version None)
Quarter: 2004Q3

REPORT INFORMATION
  Report Type: 
  Country: None (occurrence: None)
  Receive Date: 20040721
  Receipt Date: 20030922
  Transmission Date: 20050211
  Serious: No
  Sender: FDA-Public Use
  Company Number: US-BRISTOL-MYERS SQUIBB COMPANY-12390357

PATIENT
  Sex: Male

DRUGS (1)
  1. ZERIT [Suspect]

REACTIONS (1)
  - GASTROINTESTINAL HAEMORRHAGE [None]
